FAERS Safety Report 9226368 (Version 2)
Quarter: 2013Q2

REPORT INFORMATION
  Report Type: Spontaneous
  Country: US (occurrence: US)
  Receive Date: 20130411
  Receipt Date: 20130411
  Transmission Date: 20140414
  Serious: Yes (Hospitalization)
  Sender: FDA-Public Use
  Company Number: US-WATSON-2013-04302

PATIENT
  Age: 43 Year
  Sex: Female

DRUGS (1)
  1. NEXT CHOICE ONE DOSE (WATSON LABORATORIES) [Suspect]
     Indication: PRODUCT USED FOR UNKNOWN INDICATION
     Dosage: UNK, UNKNOWN
     Route: 048

REACTIONS (4)
  - Unevaluable event [Unknown]
  - Menorrhagia [Unknown]
  - Menstruation irregular [Unknown]
  - Dysmenorrhoea [Unknown]
